FAERS Safety Report 9500128 (Version 2)
Quarter: 2013Q3

REPORT INFORMATION
  Report Type: Spontaneous
  Country: US (occurrence: US)
  Receive Date: 20130905
  Receipt Date: 20130905
  Transmission Date: 20140515
  Serious: No
  Sender: FDA-Public Use
  Company Number: US-MYLANLABS-2013S1016894

PATIENT
  Sex: Female

DRUGS (1)
  1. CLOPIDOGREL TABLETS USP [Suspect]
     Route: 048
     Dates: start: 201206

REACTIONS (2)
  - Bleeding time prolonged [Not Recovered/Not Resolved]
  - Headache [Not Recovered/Not Resolved]
